FAERS Safety Report 13287878 (Version 2)
Quarter: 2018Q2

REPORT INFORMATION
  Report Type: Spontaneous
  Country: FR (occurrence: FR)
  Receive Date: 20170302
  Receipt Date: 20180416
  Transmission Date: 20180711
  Serious: Yes (Death, Hospitalization)
  Sender: FDA-Public Use
  Company Number: FR-BAYER-2017-035688

PATIENT
  Age: 67 Year
  Sex: Male
  Weight: 126.98 kg

DRUGS (9)
  1. STIVARGA [Suspect]
     Active Substance: REGORAFENIB
     Indication: HEPATOCELLULAR CARCINOMA
     Dosage: UNK
     Dates: start: 201611, end: 20170102
  2. LASIX [FUROSEMIDE SODIUM] [Concomitant]
  3. ATACAND [Concomitant]
     Active Substance: CANDESARTAN CILEXETIL
  4. NOVORAPID [Concomitant]
     Active Substance: INSULIN ASPART
  5. ULTRA-LEVURE [SACCHAROMYCES BOULARDII] [Concomitant]
  6. STIVARGA [Suspect]
     Active Substance: REGORAFENIB
     Indication: HEPATOCELLULAR CARCINOMA
     Dosage: 160 MG, QD
     Route: 048
     Dates: start: 20161016
  7. INEXIUM [Concomitant]
     Active Substance: ESOMEPRAZOLE
  8. KARDEGIC [Concomitant]
     Active Substance: ASPIRIN DL-LYSINE
  9. BISOPROLOL FUMARATE. [Concomitant]
     Active Substance: BISOPROLOL FUMARATE

REACTIONS (3)
  - Anal fistula [Recovering/Resolving]
  - Necrotising fasciitis [Fatal]
  - Anal abscess [Recovering/Resolving]

NARRATIVE: CASE EVENT DATE: 20170102
